FAERS Safety Report 24085010 (Version 1)
Quarter: 2024Q3

REPORT INFORMATION
  Report Type: Spontaneous
  Country: GB (occurrence: GB)
  Receive Date: 20240712
  Receipt Date: 20240712
  Transmission Date: 20241016
  Serious: Yes (Other)
  Sender: B BRAUN
  Company Number: GB-B.Braun Medical Inc.-2159078

PATIENT
  Age: 34 Year
  Sex: Female

DRUGS (5)
  1. SODIUM CHLORIDE [Suspect]
     Active Substance: SODIUM CHLORIDE
     Indication: Parenteral nutrition
     Route: 042
  2. ELECTROLYTES NOS [Suspect]
     Active Substance: ELECTROLYTES NOS
  3. IRON\MINERALS\POTASSIUM IOD\SODIUM FLUORIDE\SODIUM MOLYBDATE\SODIUM SE [Suspect]
     Active Substance: IRON\MINERALS\POTASSIUM IOD\SODIUM FLUORIDE\SODIUM MOLYBDATE\SODIUM SELENITE\ZINC
  4. ASCORBIC ACID\VITAMIN B COMPLEX [Suspect]
     Active Substance: ASCORBIC ACID\VITAMIN B COMPLEX
  5. CERNEVIT [Suspect]
     Active Substance: VITAMINS

REACTIONS (17)
  - Suicidal ideation [Unknown]
  - Diarrhoea [Unknown]
  - Exposure during pregnancy [Unknown]
  - Rash [Unknown]
  - Nausea [Unknown]
  - Feeling guilty [Unknown]
  - Dissociation [Unknown]
  - Feeling of despair [Unknown]
  - Depressed mood [Unknown]
  - Emotional distress [Unknown]
  - Aura [Unknown]
  - Headache [Unknown]
  - Muscle spasms [Unknown]
  - Disorientation [Unknown]
  - Dizziness [Unknown]
  - Drug interaction [Unknown]
  - Tearfulness [Unknown]
